FAERS Safety Report 5387150-0 (Version None)
Quarter: 2007Q3

REPORT INFORMATION
  Report Type: 
  Country: None (occurrence: None)
  Receive Date: 20070711
  Receipt Date: 20070625
  Transmission Date: 20080115
  Serious: Yes (Death, Hospitalization)
  Sender: FDA-Public Use
  Company Number: 20073783

PATIENT
  Age: 33 Year
  Sex: Male

DRUGS (1)
  1. LIORESAL [Suspect]
     Indication: MUSCLE SPASTICITY
     Dosage: MCG, DAILY, INTRATHECAL
     Route: 039

REACTIONS (10)
  - ARRHYTHMIA [None]
  - DEVICE FAILURE [None]
  - EAR HAEMORRHAGE [None]
  - EPISTAXIS [None]
  - HYPERTONIA [None]
  - INCORRECT DOSE ADMINISTERED [None]
  - LABORATORY TEST ABNORMAL [None]
  - RHABDOMYOLYSIS [None]
  - UROSEPSIS [None]
  - WHITE BLOOD CELL COUNT DECREASED [None]
